FAERS Safety Report 7460132-0 (Version None)
Quarter: 2011Q2

REPORT INFORMATION
  Report Type: 
  Country: None (occurrence: None)
  Receive Date: 20110505
  Receipt Date: 20110502
  Transmission Date: 20111010
  Serious: Yes (Hospitalization, Other)
  Sender: FDA-Public Use
  Company Number: US-ELI_LILLY_AND_COMPANY-US200908005973

PATIENT
  Sex: Female
  Weight: 85.261 kg

DRUGS (13)
  1. TYLENOL W/ CODEINE NO. 3 [Concomitant]
     Indication: ARTHRITIS
  2. CENTRUM SILVER [Concomitant]
  3. ASPIRIN [Concomitant]
  4. GLYBURIDE AND METFORMIN HCL [Concomitant]
     Indication: TYPE 2 DIABETES MELLITUS
     Dates: start: 20010101
  5. ZETIA [Concomitant]
  6. DIOVAN [Concomitant]
  7. TOPROL-XL [Concomitant]
     Indication: HYPERTENSION
     Dates: start: 20030101
  8. CLONIDINE [Concomitant]
     Indication: HYPERTENSION
     Route: 048
     Dates: start: 20020101
  9. HYDROCHLOROTHIAZIDE [Concomitant]
     Indication: HYPERTENSION
     Route: 048
     Dates: start: 20060101
  10. BYETTA [Suspect]
     Dosage: 5 UG, 2/D
     Dates: start: 20050901, end: 20071007
  11. METFORMIN [Concomitant]
     Indication: TYPE 2 DIABETES MELLITUS
     Dates: start: 20010101
  12. VYTORIN [Concomitant]
     Indication: BLOOD CHOLESTEROL
     Dates: start: 20060101
  13. PROCARDIA XL [Concomitant]

REACTIONS (1)
  - PANCREATITIS ACUTE [None]
